FAERS Safety Report 19115645 (Version 1)
Quarter: 2021Q2

REPORT INFORMATION
  Report Type: Spontaneous
  Country: NL (occurrence: NL)
  Receive Date: 20210409
  Receipt Date: 20210409
  Transmission Date: 20210717
  Serious: Yes (Disabling)
  Sender: FDA-Public Use
  Company Number: NL-TEVA-2021-NL-1898920

PATIENT
  Sex: Female
  Weight: 60 kg

DRUGS (2)
  1. PAROXETINE SUSP ORAAL 2MG/ML / SEROXAT SUSPENSIE 2MG/ML [Concomitant]
     Dosage: UNIT DOSE: 2 MILLIGRAM PER MILLILITER, THERAPY START AND END DATE: ASKU
     Route: 048
  2. CIPROFLOXACINE TABLET 500MG / BRAND NAME NOT SPECIFIED [Suspect]
     Active Substance: CIPROFLOXACIN
     Indication: SALMONELLOSIS
     Dosage: 1000 MILLIGRAM DAILY; THERAPY END DATE: ASKU
     Route: 065
     Dates: start: 20190522

REACTIONS (5)
  - Paraesthesia [Not Recovered/Not Resolved]
  - Nausea [Not Recovered/Not Resolved]
  - Tendonitis [Not Recovered/Not Resolved]
  - Intervertebral disc protrusion [Not Recovered/Not Resolved]
  - Tremor [Not Recovered/Not Resolved]
